FAERS Safety Report 8976437 (Version 1)
Quarter: 2012Q4

REPORT INFORMATION
  Report Type: 
  Country: US (occurrence: US)
  Receive Date: 20121219
  Receipt Date: 20121219
  Transmission Date: 20130627
  Serious: No
  Sender: FDA-Public Use
  Company Number: US-AMGEN-USASP2012062901

PATIENT
  Age: 81 Year
  Sex: Female

DRUGS (4)
  1. PROLIA [Suspect]
     Indication: OSTEOPOROSIS POSTMENOPAUSAL
     Dosage: UNK
     Dates: start: 201102
  2. MULTIVITAMIN                       /00097801/ [Concomitant]
  3. VITAMIN E                          /00110501/ [Concomitant]
  4. GLUCOSAMINE [Concomitant]

REACTIONS (5)
  - Musculoskeletal stiffness [Unknown]
  - Arthralgia [Unknown]
  - Hair texture abnormal [Unknown]
  - Tooth disorder [Unknown]
  - Musculoskeletal pain [Recovering/Resolving]
